FAERS Safety Report 18944224 (Version 1)
Quarter: 2021Q1

REPORT INFORMATION
  Report Type: Spontaneous
  Country: FR (occurrence: FR)
  Receive Date: 20210226
  Receipt Date: 20210226
  Transmission Date: 20210420
  Serious: Yes (Hospitalization)
  Sender: FDA-Public Use
  Company Number: FR-TEVA-2021-FR-1883371

PATIENT
  Age: 65 Year
  Sex: Male
  Weight: 78 kg

DRUGS (4)
  1. SOLU?MEDROL [Suspect]
     Active Substance: METHYLPREDNISOLONE SODIUM SUCCINATE
     Indication: PREMEDICATION
     Dosage: 3DF,LYOPHILISATE AND SOLUTION FOR PARENTERAL USE
     Route: 042
     Dates: start: 20201218, end: 20201231
  2. POLARAMINE [Suspect]
     Active Substance: DEXCHLORPHENIRAMINE MALEATE
     Indication: PREMEDICATION
     Dosage: 3DF
     Route: 042
     Dates: start: 20201218, end: 20201231
  3. BEVACIZUMAB ((MAMMIFERE/HAMSTER/CELLULES CHO)) [Suspect]
     Active Substance: BEVACIZUMAB
     Indication: METASTATIC BRONCHIAL CARCINOMA
     Dosage: 1500MG
     Route: 042
     Dates: start: 20201218, end: 20201231
  4. PACLITAXEL. [Suspect]
     Active Substance: PACLITAXEL
     Indication: METASTATIC BRONCHIAL CARCINOMA
     Dosage: 540MG
     Route: 041
     Dates: start: 20201218, end: 20201231

REACTIONS (1)
  - Hepatocellular injury [Recovering/Resolving]

NARRATIVE: CASE EVENT DATE: 20210113
